FAERS Safety Report 4859661-5 (Version None)
Quarter: 2005Q4

REPORT INFORMATION
  Report Type: 
  Country: None (occurrence: None)
  Receive Date: 20051215
  Receipt Date: 20051202
  Transmission Date: 20060501
  Serious: Yes (Hospitalization)
  Sender: FDA-Public Use
  Company Number: USA-2005-0021909

PATIENT
  Age: 1 Year
  Sex: Male

DRUGS (5)
  1. CEFDITOREN PIVOXIL (SIMILAR TO NDA-21-222) (CEFDITOREN PIVOXIL) OTHER [Suspect]
     Indication: BRONCHITIS ACUTE
     Dosage: 80 MG, DAILY; ORAL
     Route: 048
     Dates: start: 20051029, end: 20051031
  2. ASVERIN (TIPEPIDINE HIBENZATE) [Concomitant]
  3. METHY F (METHYLEPHEDRINE HYDROCHLORIDE-DL) [Concomitant]
  4. PERIACTIN [Concomitant]
  5. ANHIBA [Concomitant]

REACTIONS (2)
  - NEUTROPENIA [None]
  - THERAPY NON-RESPONDER [None]
